FAERS Safety Report 4685633-X (Version None)
Quarter: 2005Q2

REPORT INFORMATION
  Report Type: 
  Country: None (occurrence: None)
  Receive Date: 20050608
  Receipt Date: 20041020
  Transmission Date: 20051028
  Serious: Yes (Hospitalization, Disabling)
  Sender: FDA-Public Use
  Company Number: DE-MERCK-0410DEU00611

PATIENT
  Age: 46 Year
  Sex: Male
  Weight: 88 kg

DRUGS (7)
  1. VIOXX [Suspect]
     Indication: OSTEOARTHRITIS
     Route: 048
     Dates: start: 20021125, end: 20041001
  2. VIOXX [Suspect]
     Indication: ROTATOR CUFF SYNDROME
     Route: 048
     Dates: start: 20021125, end: 20041001
  3. PHENPROCOUMON [Concomitant]
     Route: 065
     Dates: start: 20021007
  4. LEVETIRACETAM [Concomitant]
     Route: 065
     Dates: start: 20011101
  5. TIZANIDINE HYDROCHLORIDE [Concomitant]
     Route: 065
     Dates: start: 20011101
  6. TIZANIDINE HYDROCHLORIDE [Concomitant]
     Route: 048
     Dates: start: 20011101
  7. ATORVASTATIN CALCIUM [Concomitant]
     Route: 065

REACTIONS (12)
  - CEREBELLAR INFARCTION [None]
  - CEREBRAL ARTERY OCCLUSION [None]
  - CHEST PAIN [None]
  - DYSPHAGIA [None]
  - DYSPNOEA EXERTIONAL [None]
  - EPILEPSY [None]
  - NYSTAGMUS [None]
  - PUPILS UNEQUAL [None]
  - SYNCOPE [None]
  - TRANSIENT ISCHAEMIC ATTACK [None]
  - VENOUS THROMBOSIS LIMB [None]
  - VERTEBRAL ARTERY OCCLUSION [None]
